FAERS Safety Report 10203475 (Version 3)
Quarter: 2014Q3

REPORT INFORMATION
  Report Type: Report from Study
  Country: CA (occurrence: None)
  Receive Date: 20140523
  Receipt Date: 20140814
  Transmission Date: 20150326
  Serious: Yes (Hospitalization)
  Sender: FDA-Public Use
  Company Number: VAL_03147_2014

PATIENT
  Age: 76 Year
  Sex: Male
  Weight: 107 kg

DRUGS (13)
  1. SYNTHROID [Concomitant]
     Active Substance: LEVOTHYROXINE SODIUM
  2. PREDNISONE. [Concomitant]
     Active Substance: PREDNISONE
  3. METOPROLOL [Suspect]
     Active Substance: METOPROLOL
     Indication: CARDIAC FAILURE CONGESTIVE
     Route: 048
     Dates: start: 20120915, end: 20130326
  4. AMLODIPINE [Concomitant]
     Active Substance: AMLODIPINE BESYLATE
  5. LCZ696 [Suspect]
     Active Substance: INVESTIGATIONAL PRODUCT
     Indication: CARDIAC FAILURE CHRONIC
     Route: 048
     Dates: start: 20120815, end: 20130324
  6. ASPIRIN. [Concomitant]
     Active Substance: ASPIRIN
  7. LIPIDIL EZ [Concomitant]
     Active Substance: FENOFIBRATE
  8. TOLOXIN /00017701/ [Concomitant]
  9. WARFARIN [Concomitant]
     Active Substance: WARFARIN
  10. NITRO /00003201/ [Concomitant]
  11. METOPROLOL [Suspect]
     Active Substance: METOPROLOL
     Indication: HYPERTENSION
     Route: 048
     Dates: start: 20120915, end: 20130326
  12. HYDROCHLOROTHIAZIDE. [Concomitant]
     Active Substance: HYDROCHLOROTHIAZIDE
  13. SIMVASTATIN. [Concomitant]
     Active Substance: SIMVASTATIN

REACTIONS (4)
  - Chest pain [None]
  - Atrial fibrillation [None]
  - Palpitations [None]
  - Atelectasis [None]

NARRATIVE: CASE EVENT DATE: 20130324
